FAERS Safety Report 8491215-4 (Version None)
Quarter: 2012Q3

REPORT INFORMATION
  Report Type: 
  Country: None (occurrence: None)
  Receive Date: 20120706
  Receipt Date: 20120626
  Transmission Date: 20120928
  Serious: Yes (Other)
  Sender: FDA-Public Use
  Company Number: CA-JNJFOC-20120613776

PATIENT
  Sex: Male
  Weight: 76.5 kg

DRUGS (3)
  1. ASACOL [Concomitant]
     Route: 065
  2. IMURAN [Concomitant]
     Route: 048
  3. REMICADE [Suspect]
     Indication: CROHN'S DISEASE
     Dosage: 300 MG 6 THEN 8 WEEKS
     Route: 042
     Dates: start: 20120612

REACTIONS (4)
  - PARAESTHESIA [None]
  - FOOD POISONING [None]
  - VOMITING [None]
  - NAUSEA [None]
